FAERS Safety Report 15111466 (Version 1)
Quarter: 2018Q3

REPORT INFORMATION
  Report Type: Spontaneous
  Country: FR (occurrence: FR)
  Receive Date: 20180705
  Receipt Date: 20180705
  Transmission Date: 20181010
  Serious: Yes (Hospitalization)
  Sender: FDA-Public Use
  Company Number: FR-ASTRAZENECA-2018SE83612

PATIENT
  Age: 52 Year
  Sex: Female
  Weight: 75 kg

DRUGS (1)
  1. TICAGRELOR. [Suspect]
     Active Substance: TICAGRELOR
     Indication: POISONING DELIBERATE
     Dosage: 300.0DF UNKNOWN
     Route: 048
     Dates: start: 20180529, end: 20180529

REACTIONS (1)
  - Platelet function test abnormal [Recovered/Resolved]

NARRATIVE: CASE EVENT DATE: 20180530
